FAERS Safety Report 9875808 (Version 1)
Quarter: 2014Q1

REPORT INFORMATION
  Report Type: Other
  Country: US (occurrence: US)
  Receive Date: 20140206
  Receipt Date: 20140206
  Transmission Date: 20141002
  Serious: No
  Sender: FDA-Public Use
  Company Number: US-ACORDA-ACO_37480_2013

PATIENT
  Sex: Female

DRUGS (2)
  1. AMPYRA [Suspect]
     Indication: PRODUCT USED FOR UNKNOWN INDICATION
     Dosage: 10 MG, Q 12 HRS
     Route: 048
     Dates: start: 20130621, end: 2013
  2. AMPYRA [Suspect]
     Dosage: 10 MG, QD
     Route: 048

REACTIONS (4)
  - Constipation [Unknown]
  - Dizziness [Unknown]
  - Drug ineffective [Unknown]
  - Incorrect dose administered [None]
